FAERS Safety Report 8622213 (Version 2)
Quarter: 2012Q4

REPORT INFORMATION
  Report Type: 
  Country: TR (occurrence: TR)
  Receive Date: 20120619
  Receipt Date: 20120906
  Transmission Date: 20130627
  Serious: Yes (Other)
  Sender: FDA-Public Use
  Company Number: TR-ROCHE-1077361

PATIENT
  Age: 47 Year
  Sex: Male

DRUGS (2)
  1. AVASTIN [Suspect]
     Indication: CYSTOID MACULAR OEDEMA
     Dosage: 1.25 mg/0.05 cc
     Route: 050
  2. AVASTIN [Suspect]
     Indication: DIABETIC RETINOPATHY

REACTIONS (2)
  - Angioedema [Recovering/Resolving]
  - Conjunctival oedema [Recovering/Resolving]
